FAERS Safety Report 22519680 (Version 1)
Quarter: 2023Q2

REPORT INFORMATION
  Report Type: Spontaneous
  Country: US (occurrence: US)
  Receive Date: 20230605
  Receipt Date: 20230605
  Transmission Date: 20230722
  Serious: No
  Sender: FDA-Public Use
  Company Number: US-SANOFI-01637536

PATIENT

DRUGS (1)
  1. RENVELA [Suspect]
     Active Substance: SEVELAMER CARBONATE
     Dosage: UNK

REACTIONS (1)
  - Dysphagia [Unknown]
